FAERS Safety Report 9366583 (Version 1)
Quarter: 2013Q2

REPORT INFORMATION
  Report Type: Spontaneous
  Country: US (occurrence: US)
  Receive Date: 20130625
  Receipt Date: 20130625
  Transmission Date: 20140414
  Serious: No
  Sender: FDA-Public Use
  Company Number: US-B.I. PHARMACEUTICALS,INC./RIDGEFIELD-2013-BI-17424BP

PATIENT
  Age: 85 Year
  Sex: Female
  Weight: 62 kg

DRUGS (5)
  1. SPIRIVA [Suspect]
     Indication: CHRONIC OBSTRUCTIVE PULMONARY DISEASE
     Dosage: 18 MCG
     Route: 055
     Dates: start: 20130223
  2. GABAPENTIN [Concomitant]
     Indication: MIGRAINE
     Dosage: 800 MG
     Route: 048
     Dates: start: 2004
  3. GABAPENTIN [Concomitant]
     Indication: DEPRESSION
  4. LOVASTATIN [Concomitant]
     Indication: BLOOD CHOLESTEROL INCREASED
     Dosage: 10 MG
     Route: 048
     Dates: start: 2004
  5. LORAZEPAM [Concomitant]
     Indication: ANXIETY
     Dosage: 6 MG
     Route: 048
     Dates: start: 1985

REACTIONS (3)
  - Adenoidal disorder [Recovered/Resolved]
  - Oropharyngeal pain [Not Recovered/Not Resolved]
  - Constipation [Not Recovered/Not Resolved]
